FAERS Safety Report 22143755 (Version 2)
Quarter: 2023Q2

REPORT INFORMATION
  Report Type: Report from Study
  Country: US (occurrence: US)
  Receive Date: 20230327
  Receipt Date: 20230410
  Transmission Date: 20230722
  Serious: Yes (Hospitalization, Other)
  Sender: FDA-Public Use
  Company Number: US-BoehringerIngelheim-2022-BI-206344

PATIENT
  Age: 71 Year
  Sex: Female

DRUGS (2)
  1. OFEV [Suspect]
     Active Substance: NINTEDANIB
     Indication: Idiopathic pulmonary fibrosis
     Route: 048
     Dates: start: 202209
  2. OFEV [Suspect]
     Active Substance: NINTEDANIB
     Indication: Scleroderma
     Route: 048
     Dates: start: 20230211

REACTIONS (16)
  - Diarrhoea [Recovered/Resolved]
  - Pulmonary congestion [Recovered/Resolved]
  - Crepitations [Not Recovered/Not Resolved]
  - Inflammatory pain [Recovered/Resolved]
  - Arthralgia [Recovering/Resolving]
  - Peripheral swelling [Not Recovered/Not Resolved]
  - Feeling abnormal [Not Recovered/Not Resolved]
  - Fatigue [Not Recovered/Not Resolved]
  - Abdominal pain upper [Recovered/Resolved]
  - Weight decreased [Not Recovered/Not Resolved]
  - Asthenia [Not Recovered/Not Resolved]
  - Illness [Recovered/Resolved]
  - Colitis ulcerative [Not Recovered/Not Resolved]
  - Nausea [Unknown]
  - Vomiting [Unknown]
  - Gastrointestinal disorder [Unknown]

NARRATIVE: CASE EVENT DATE: 20221118
